FAERS Safety Report 9034304 (Version 1)
Quarter: 2013Q1

REPORT INFORMATION
  Report Type: Spontaneous
  Country: US (occurrence: None)
  Receive Date: 20130116
  Receipt Date: 20130116
  Transmission Date: 20140127
  Serious: Yes (Life-Threatening, Hospitalization)
  Sender: FDA-Public Use
  Company Number: None

PATIENT
  Age: 21 Year
  Sex: Male
  Weight: 68.04 kg

DRUGS (1)
  1. SERTRALINE HCL [Suspect]
     Indication: DEPRESSION
     Dosage: 1/2 PILL
     Dates: start: 20130115, end: 20130115

REACTIONS (7)
  - Loss of consciousness [None]
  - Head injury [None]
  - Fall [None]
  - Syncope [None]
  - Wound haemorrhage [None]
  - Dizziness [None]
  - Malaise [None]
